FAERS Safety Report 6396591-4 (Version None)
Quarter: 2009Q4

REPORT INFORMATION
  Report Type: 
  Country: None (occurrence: None)
  Receive Date: 20091008
  Receipt Date: 20091008
  Transmission Date: 20100525
  Serious: Yes (Life-Threatening)
  Sender: FDA-Public Use
  Company Number: None

PATIENT
  Sex: Female
  Weight: 24 kg

DRUGS (4)
  1. CAMPATH [Suspect]
     Indication: PROPHYLAXIS AGAINST TRANSPLANT REJECTION
     Dosage: 0.4MG/KG/OVER 3 HR/IV
     Route: 042
     Dates: start: 20090328, end: 20090329
  2. TACROLIMUS FK506, ASTELLAS [Suspect]
     Indication: PROPHYLAXIS AGAINST TRANSPLANT REJECTION
     Dosage: 2MG BID PO
     Route: 048
     Dates: start: 20090329, end: 20090919
  3. ORTHOCLONE OKT3 [Concomitant]
  4. RITUXIMAB [Concomitant]

REACTIONS (8)
  - CLOSTRIDIAL INFECTION [None]
  - EPSTEIN-BARR VIRUS ASSOCIATED LYMPHOPROLIFERATIVE DISORDER [None]
  - HAEMOLYTIC URAEMIC SYNDROME [None]
  - HYPERTENSION [None]
  - RESPIRATORY FAILURE [None]
  - SMALL INTESTINAL OBSTRUCTION [None]
  - THROMBOCYTOPENIA [None]
  - TRANSPLANT REJECTION [None]
